FAERS Safety Report 22149239 (Version 1)
Quarter: 2023Q1

REPORT INFORMATION
  Report Type: Spontaneous
  Country: US (occurrence: US)
  Receive Date: 20230329
  Receipt Date: 20230329
  Transmission Date: 20230418
  Serious: No
  Sender: FDA-Public Use
  Company Number: US-drreddys-SPO/USA/23/0160499

PATIENT
  Age: 15 Year

DRUGS (2)
  1. ZENATANE [Suspect]
     Active Substance: ISOTRETINOIN
     Indication: Acne
     Dosage: RMA ISSUE DATE: 19 AUGUST 2022 11:31:04 AM, 20 SEPTEMBER 2022 11:04:20 AM, 08 NOVEMBER 2022 04:24:05
  2. ZENATANE [Suspect]
     Active Substance: ISOTRETINOIN
     Dosage: RMA ISSUE DATE:14 JULY 2022 04:35:32 PM

REACTIONS (1)
  - Blood triglycerides increased [Unknown]
